FAERS Safety Report 9626805 (Version 1)
Quarter: 2013Q4

REPORT INFORMATION
  Report Type: Spontaneous
  Country: US (occurrence: None)
  Receive Date: 20131011
  Receipt Date: 20131011
  Transmission Date: 20140711
  Serious: Yes (Death)
  Sender: FDA-Public Use
  Company Number: 2013AP008576

PATIENT
  Age: 31 Year
  Sex: Female

DRUGS (7)
  1. CITALOPRAM HYDROBROMIDE [Suspect]
     Route: 048
  2. CLONAZEPAM [Suspect]
     Route: 048
  3. MIRTAZAPINE [Suspect]
     Route: 048
  4. ALPRAZOLAM [Suspect]
     Route: 048
  5. COCAINE [Suspect]
     Route: 048
  6. PROPRANOLOL [Suspect]
     Route: 048
  7. ETHANOL [Suspect]
     Route: 048

REACTIONS (1)
  - Completed suicide [None]
